FAERS Safety Report 5742836-0 (Version None)
Quarter: 2008Q2

REPORT INFORMATION
  Report Type: 
  Country: None (occurrence: None)
  Receive Date: 20080519
  Receipt Date: 20080508
  Transmission Date: 20081010
  Serious: Yes (Disabling, Other)
  Sender: FDA-Public Use
  Company Number: CA-JNJFOC-20080405481

PATIENT
  Sex: Male

DRUGS (2)
  1. TRAMACET [Suspect]
     Route: 048
  2. TRAMACET [Suspect]
     Indication: PAIN IN EXTREMITY
     Route: 048

REACTIONS (2)
  - BENIGN PROSTATIC HYPERPLASIA [None]
  - URINARY RETENTION [None]
